FAERS Safety Report 9376235 (Version 1)
Quarter: 2013Q3

REPORT INFORMATION
  Report Type: Spontaneous
  Country: GB (occurrence: GB)
  Receive Date: 20130701
  Receipt Date: 20130701
  Transmission Date: 20140515
  Serious: Yes (Other)
  Sender: FDA-Public Use
  Company Number: GB-BRISTOL-MYERS SQUIBB COMPANY-19052778

PATIENT
  Age: 82 Year
  Sex: Male

DRUGS (13)
  1. METFORMIN HCL [Suspect]
     Indication: DIABETES MELLITUS
     Route: 048
     Dates: start: 201010, end: 20130603
  2. PIOGLITAZONE HCL [Suspect]
  3. ADCAL-D3 [Concomitant]
  4. ATENOLOL [Concomitant]
  5. BUPRENORPHINE [Concomitant]
  6. CLOPIDOGREL BISULFATE [Concomitant]
  7. CODEINE [Concomitant]
  8. OMEPRAZOLE [Concomitant]
  9. FUROSEMIDE [Concomitant]
     Dates: start: 20130528
  10. PERINDOPRIL [Concomitant]
  11. PREDNISOLONE [Concomitant]
  12. SIMVASTATIN [Concomitant]
  13. TAMSULOSIN [Concomitant]

REACTIONS (1)
  - Cardiac failure [Recovering/Resolving]
